FAERS Safety Report 4430027-5 (Version None)
Quarter: 2004Q3

REPORT INFORMATION
  Report Type: 
  Country: None (occurrence: None)
  Receive Date: 20040820
  Receipt Date: 20040816
  Transmission Date: 20050211
  Serious: Yes (Disabling)
  Sender: FDA-Public Use
  Company Number: US-MERCK-0408USA01305

PATIENT
  Age: 40 Year
  Sex: Male

DRUGS (1)
  1. MEVACOR [Suspect]
     Indication: BLOOD CHOLESTEROL INCREASED
     Route: 048
     Dates: start: 20010101, end: 20040101

REACTIONS (3)
  - SKIN DISCOLOURATION [None]
  - SPEECH DISORDER [None]
  - VISUAL DISTURBANCE [None]
